FAERS Safety Report 8310262-6 (Version None)
Quarter: 2012Q2

REPORT INFORMATION
  Report Type: 
  Country: None (occurrence: None)
  Receive Date: 20120425
  Receipt Date: 20120413
  Transmission Date: 20120825
  Serious: Yes (Hospitalization, Other)
  Sender: FDA-Public Use
  Company Number: US-SANOFI-AVENTIS-2012SA019202

PATIENT
  Age: 67 Year
  Sex: Female
  Weight: 65.13 kg

DRUGS (33)
  1. DOCETAXEL [Suspect]
     Route: 041
  2. MIRALAX [Concomitant]
  3. COMPAZINE [Concomitant]
  4. MULTI-VITAMINS [Concomitant]
  5. AMBIEN [Concomitant]
  6. DOCETAXEL [Suspect]
     Route: 041
  7. VITAMIN D [Concomitant]
  8. ALBUTEROL SULFATE AND IPRATROPIUM BROMIDE [Concomitant]
  9. ALLEGRA [Concomitant]
  10. ALOXI [Concomitant]
  11. ATIVAN [Concomitant]
  12. XANAX [Concomitant]
  13. CALCIUM CARBONATE [Concomitant]
  14. ALBUTEROL [Concomitant]
  15. BLINDED THERAPY [Suspect]
     Dates: start: 20111005, end: 20111028
  16. DIPHENHYDRAMINE [Concomitant]
  17. FLONASE [Concomitant]
  18. SYNTHROID [Concomitant]
  19. DOCETAXEL [Suspect]
     Route: 041
  20. DOCETAXEL [Suspect]
     Dates: start: 20111005, end: 20111005
  21. MORPHINE [Concomitant]
  22. BUDESONIDE [Concomitant]
  23. ASCORBIC ACID [Concomitant]
  24. PEPCID [Concomitant]
  25. SINGULAIR [Concomitant]
  26. DOCETAXEL [Suspect]
     Dates: start: 20110908, end: 20110908
  27. BLINDED THERAPY [Suspect]
     Dates: start: 20110617, end: 20111005
  28. ASPIRIN [Concomitant]
  29. AZITHROMYCIN [Concomitant]
     Dates: start: 20110823, end: 20110830
  30. ZOFRAN [Concomitant]
  31. DOCETAXEL [Suspect]
     Route: 041
     Dates: start: 20110617, end: 20110617
  32. ZOMETA [Concomitant]
  33. ZOLOFT [Concomitant]

REACTIONS (3)
  - MEDICATION ERROR [None]
  - FATIGUE [None]
  - FEBRILE NEUTROPENIA [None]
